APPROVED DRUG PRODUCT: OXCARBAZEPINE
Active Ingredient: OXCARBAZEPINE
Strength: 600MG
Dosage Form/Route: TABLET, EXTENDED RELEASE;ORAL
Application: A213369 | Product #003 | TE Code: AB
Applicant: APOTEX INC
Approved: Jul 13, 2023 | RLD: No | RS: No | Type: RX